FAERS Safety Report 6632238-7 (Version None)
Quarter: 2010Q1

REPORT INFORMATION
  Report Type: 
  Country: None (occurrence: None)
  Receive Date: 20100310
  Receipt Date: 20100301
  Transmission Date: 20100710
  Serious: Yes (Other)
  Sender: FDA-Public Use
  Company Number: 524853

PATIENT
  Age: 12 Year
  Sex: Female

DRUGS (5)
  1. METHOTREXATE [Suspect]
     Indication: BONE SARCOMA
  2. CISPLATIN [Suspect]
     Indication: BONE SARCOMA
  3. CYCLOPHOSPHAMIDE [Suspect]
     Indication: BONE SARCOMA
  4. DOXORUBICIN HCL [Suspect]
     Indication: BONE SARCOMA
  5. IFOSFAMIDE [Suspect]
     Indication: BONE SARCOMA

REACTIONS (1)
  - ACUTE MYELOID LEUKAEMIA [None]
